FAERS Safety Report 16567737 (Version 1)
Quarter: 2019Q3

REPORT INFORMATION
  Report Type: Spontaneous
  Country: DE (occurrence: DE)
  Receive Date: 20190712
  Receipt Date: 20190712
  Transmission Date: 20191004
  Serious: Yes (Hospitalization)
  Sender: FDA-Public Use
  Company Number: DE-NAPPMUNDI-GBR-2019-0067867

PATIENT
  Age: 74 Year
  Sex: Female

DRUGS (10)
  1. PANTOPRAZOL [Concomitant]
     Active Substance: PANTOPRAZOLE SODIUM
     Dosage: 40 MG, BID (40 MG, 1-0-0-0)
  2. OPIPRAMOL [Concomitant]
     Active Substance: OPIPRAMOL
     Dosage: 100 MG, BID (100 MG, 0.5-0-1-0)
  3. LEVOTHYROXINE SODIUM. [Concomitant]
     Active Substance: LEVOTHYROXINE SODIUM
     Dosage: 100 MCG, DAILY (100 MCG, 1-0-0-0)
  4. COLECALCIFEROL [Concomitant]
     Active Substance: CHOLECALCIFEROL
     Dosage: UNK, BID (1000 IE, 1-0-1-0)
  5. RANOLAZINE. [Suspect]
     Active Substance: RANOLAZINE
     Indication: PRODUCT USED FOR UNKNOWN INDICATION
     Dosage: 375 MG, BID (375 MG, 1-0-1-0)
     Route: 065
  6. ATROVENT [Concomitant]
     Active Substance: IPRATROPIUM BROMIDE
     Dosage: UNK, QID (20 HUB, 1-1-1-1)
     Route: 055
  7. MOVICOL [Concomitant]
     Active Substance: POLYETHYLENE GLYCOL 3350\POTASSIUM CHLORIDE\SODIUM BICARBONATE\SODIUM CHLORIDE
     Dosage: UNK
  8. OXYCODONE HYDROCHLORIDE. [Suspect]
     Active Substance: OXYCODONE HYDROCHLORIDE
     Indication: PRODUCT USED FOR UNKNOWN INDICATION
     Dosage: 20 MG, TID (20 MG, 1-1-1-0)
     Route: 065
  9. SULTANOL [Concomitant]
     Active Substance: ALBUTEROL SULFATE
     Dosage: UNK, QID (3-3-3-3, TROPFEN)
     Route: 055
  10. BUDESONIDE. [Concomitant]
     Active Substance: BUDESONIDE
     Dosage: UNK, BID (2-0-2-0)

REACTIONS (7)
  - Vomiting [Unknown]
  - Cough [Unknown]
  - Weight decreased [Unknown]
  - Decreased appetite [Unknown]
  - Dyspnoea [Unknown]
  - Constipation [Unknown]
  - Nausea [Unknown]
